FAERS Safety Report 25967925 (Version 2)
Quarter: 2025Q4

REPORT INFORMATION
  Report Type: Spontaneous
  Country: US (occurrence: US)
  Receive Date: 20251028
  Receipt Date: 20251111
  Transmission Date: 20260118
  Serious: Yes (Other)
  Sender: ROCHE
  Company Number: None

PATIENT
  Age: 58 Year
  Sex: Female

DRUGS (5)
  1. MYCOPHENOLATE MOFETIL [Suspect]
     Active Substance: MYCOPHENOLATE MOFETIL
     Indication: Prophylaxis against transplant rejection
     Route: 065
  2. SIROLIMUS [Concomitant]
     Active Substance: SIROLIMUS
  3. TACROLIMUS [Concomitant]
     Active Substance: TACROLIMUS
  4. BORTEZOMIB [Concomitant]
     Active Substance: BORTEZOMIB
  5. METHOTREXATE [Concomitant]
     Active Substance: METHOTREXATE

REACTIONS (1)
  - Leukopenia [Unknown]
